FAERS Safety Report 8044088-8 (Version None)
Quarter: 2012Q1

REPORT INFORMATION
  Report Type: 
  Country: None (occurrence: None)
  Receive Date: 20120113
  Receipt Date: 20120109
  Transmission Date: 20120608
  Serious: Yes (Disabling)
  Sender: FDA-Public Use
  Company Number: US-BAYER-2011-124576

PATIENT
  Age: 57 Year
  Sex: Male

DRUGS (2)
  1. NEXAVAR [Suspect]
     Indication: HEPATIC NEOPLASM MALIGNANT
     Dosage: 400 MG, QD
     Dates: start: 20111221
  2. NEXAVAR [Suspect]
     Dosage: 600 MG, QD

REACTIONS (5)
  - PAIN IN EXTREMITY [None]
  - DIARRHOEA [None]
  - PARAESTHESIA [None]
  - BLISTER [None]
  - ABASIA [None]
